FAERS Safety Report 4710797-9 (Version None)
Quarter: 2005Q3

REPORT INFORMATION
  Report Type: 
  Country: None (occurrence: None)
  Receive Date: 20050705
  Receipt Date: 20050617
  Transmission Date: 20060218
  Serious: Yes (Hospitalization)
  Sender: FDA-Public Use
  Company Number: DEWYE752517JUN05

PATIENT
  Sex: Male

DRUGS (1)
  1. REFACTO [Suspect]
     Indication: HAEMOPHILIA
     Dosage: 1000 IU EVERY SECOND DAY INTRAVENOUS
     Route: 042

REACTIONS (2)
  - ARTHROPATHY [None]
  - SURGERY [None]
